FAERS Safety Report 13062407 (Version 3)
Quarter: 2017Q1

REPORT INFORMATION
  Report Type: Spontaneous
  Country: FR (occurrence: FR)
  Receive Date: 20161226
  Receipt Date: 20170315
  Transmission Date: 20170428
  Serious: Yes (Hospitalization, Other)
  Sender: FDA-Public Use
  Company Number: FR-BRISTOL-MYERS SQUIBB COMPANY-BMS-2016-107087

PATIENT
  Sex: Male
  Weight: 72 kg

DRUGS (5)
  1. TAMSULOSINE [Concomitant]
     Active Substance: TAMSULOSIN HYDROCHLORIDE
     Indication: PROSTATIC DISORDER
     Dosage: 0.4 MG, QD
     Route: 065
     Dates: start: 1992
  2. KETOPROFENE                        /00321701/ [Concomitant]
     Active Substance: KETOPROFEN
     Indication: METASTASES TO BONE
     Dosage: 100 MG, QD
     Route: 048
     Dates: start: 20161012, end: 20161026
  3. OPDIVO [Suspect]
     Active Substance: NIVOLUMAB
     Indication: NON-SMALL CELL LUNG CANCER
     Dosage: 200 MG, UNK
     Route: 042
     Dates: start: 20161012, end: 20161123
  4. OMEPRAZOLE. [Concomitant]
     Active Substance: OMEPRAZOLE
     Indication: GASTRODUODENAL ULCER
     Dosage: 20 MG, QD
     Route: 065
     Dates: start: 2015, end: 20161026
  5. PARACETAMOL [Concomitant]
     Active Substance: ACETAMINOPHEN
     Indication: METASTASES TO BONE
     Dosage: 3 G, QD
     Route: 048
     Dates: start: 20161012, end: 20161026

REACTIONS (2)
  - Pancytopenia [Unknown]
  - Platelet transfusion [Unknown]
